FAERS Safety Report 20862117 (Version 1)
Quarter: 2022Q2

REPORT INFORMATION
  Report Type: Spontaneous
  Country: CN (occurrence: CN)
  Receive Date: 20220523
  Receipt Date: 20220523
  Transmission Date: 20220721
  Serious: Yes (Life-Threatening)
  Sender: FDA-Public Use
  Company Number: CN-PFIZER INC-202200708409

PATIENT
  Age: 15 Year
  Sex: Female
  Weight: 50 kg

DRUGS (2)
  1. AZITHROMYCIN [Suspect]
     Active Substance: AZITHROMYCIN
     Indication: Upper respiratory tract infection
     Dosage: 0.4 G, 1X/DAY
     Route: 041
     Dates: start: 20220501, end: 20220501
  2. DEXTROSE [Concomitant]
     Active Substance: DEXTROSE
     Indication: Upper respiratory tract infection
     Dosage: 100 ML, 1X/DAY
     Route: 041
     Dates: start: 20220501, end: 20220501

REACTIONS (3)
  - Hypotension [Recovering/Resolving]
  - Pallor [Recovering/Resolving]
  - Confusional state [Recovering/Resolving]

NARRATIVE: CASE EVENT DATE: 20220501
